FAERS Safety Report 7892841-3 (Version None)
Quarter: 2011Q4

REPORT INFORMATION
  Report Type: 
  Country: None (occurrence: None)
  Receive Date: 20111104
  Receipt Date: 20111101
  Transmission Date: 20120403
  Serious: Yes (Other)
  Sender: FDA-Public Use
  Company Number: US-PFIZER INC-2011267924

PATIENT
  Sex: Female
  Weight: 104 kg

DRUGS (3)
  1. XANAX [Concomitant]
     Indication: DEPRESSION
     Dosage: 1 MG, AS NEEDED
  2. KLONOPIN [Concomitant]
     Indication: DEPRESSION
     Dosage: 1 MG, 3X/DAY
  3. PRISTIQ [Suspect]
     Indication: PANIC ATTACK
     Dosage: 100 MG, DAILY
     Dates: start: 20090101

REACTIONS (3)
  - DYSPNOEA [None]
  - PANIC ATTACK [None]
  - SWELLING [None]
